FAERS Safety Report 10393834 (Version 1)
Quarter: 2014Q3

REPORT INFORMATION
  Report Type: Spontaneous
  Country: TR (occurrence: None)
  Receive Date: 20140815
  Receipt Date: 20140815
  Transmission Date: 20150326
  Serious: Yes (Hospitalization)
  Sender: FDA-Public Use
  Company Number: NSR_01599_2014

PATIENT
  Age: 24 Month
  Sex: Male

DRUGS (1)
  1. PROPRANOLOL [Suspect]
     Active Substance: PROPRANOLOL\PROPRANOLOL HYDROCHLORIDE
     Indication: INTRA-ABDOMINAL HAEMANGIOMA

REACTIONS (7)
  - Hypoglycaemia [None]
  - Therapy cessation [None]
  - Hyperkalaemia [None]
  - Economic problem [None]
  - Disease recurrence [None]
  - Gastrointestinal haemorrhage [None]
  - Treatment noncompliance [None]
